FAERS Safety Report 4817545-2 (Version None)
Quarter: 2005Q4

REPORT INFORMATION
  Report Type: 
  Country: None (occurrence: None)
  Receive Date: 20051031
  Receipt Date: 20051019
  Transmission Date: 20060501
  Serious: Yes (Other)
  Sender: FDA-Public Use
  Company Number: 2005133885

PATIENT
  Age: 46 Year
  Sex: Female

DRUGS (1)
  1. CYTOTEC [Suspect]
     Indication: STOMACH DISCOMFORT
     Dosage: ORAL
     Route: 048

REACTIONS (3)
  - CARDIOVASCULAR DISORDER [None]
  - DYSPEPSIA [None]
  - VAGINAL HAEMORRHAGE [None]
